FAERS Safety Report 6703084-0 (Version None)
Quarter: 2010Q2

REPORT INFORMATION
  Report Type: 
  Country: None (occurrence: None)
  Receive Date: 20100428
  Receipt Date: 20100420
  Transmission Date: 20101027
  Serious: Yes (Disabling, Other)
  Sender: FDA-Public Use
  Company Number: 2009JP004446

PATIENT
  Age: 49 Year
  Sex: Female
  Weight: 45 kg

DRUGS (19)
  1. TACROLIMUS [Suspect]
     Indication: LUPUS NEPHRITIS
     Dosage: 3 MG, /D, ORAL
     Route: 048
     Dates: start: 20070207, end: 20090605
  2. NEORAL [Suspect]
     Dosage: 150 MG, /D ; 100 MG, /D
     Dates: start: 20050501
  3. PREDNONINE (PREDNISOLONE) [Concomitant]
  4. MUCOSTA (REBAMIPIDE) [Concomitant]
  5. LANSOPRAZOLE [Concomitant]
  6. ROCALTROL [Concomitant]
  7. ASPIRIN [Concomitant]
  8. CRESTOR (ROSUVASTATIN CALICUM) [Concomitant]
  9. VIT K CAP [Concomitant]
  10. ONON (PRANLUKAST) [Concomitant]
  11. PERSANTIN [Concomitant]
  12. ISODINE (POVIDONE-IODINE) [Concomitant]
  13. FOSAMAC (ALENDRONATE SODIUM) [Concomitant]
  14. RISEDRONATE SODIUM [Concomitant]
  15. ACTONEL [Concomitant]
  16. RABEPRAZOLE SODIUM [Concomitant]
  17. IRBESARTAN [Concomitant]
  18. TANATRIL (IMIDAPRIL HYDROCHLORIDE) [Concomitant]
  19. WARFARIN SODIUM [Concomitant]

REACTIONS (4)
  - ANHEDONIA [None]
  - OSTEONECROSIS [None]
  - PARKINSON'S DISEASE [None]
  - TREMOR [None]
